FAERS Safety Report 9328120 (Version 1)
Quarter: 2013Q2

REPORT INFORMATION
  Report Type: Spontaneous
  Country: US (occurrence: US)
  Receive Date: 20130604
  Receipt Date: 20130604
  Transmission Date: 20140414
  Serious: No
  Sender: FDA-Public Use
  Company Number: US-SANOFI-AVENTIS-2012SA035518

PATIENT
  Age: 78 Year
  Sex: Female
  Weight: 73 kg

DRUGS (6)
  1. SOLOSTAR [Suspect]
     Indication: DEVICE THERAPY
     Dates: start: 2009
  2. LANTUS [Suspect]
     Indication: TYPE 2 DIABETES MELLITUS
     Dosage: 4 UNITS IF NEEDED IN THE MORNING, AND 20 UNITS IN THE EVENING. DOSE:20 UNIT(S)
     Route: 058
     Dates: start: 20090502
  3. LOSARTAN [Concomitant]
     Indication: HYPERTENSION
     Dates: start: 1995
  4. ATENOLOL [Concomitant]
     Indication: HYPERTENSION
     Dates: start: 1990
  5. FUROSEMIDE [Concomitant]
     Indication: JOINT SWELLING
     Dates: start: 20090502
  6. WARFARIN [Concomitant]
     Indication: COAGULOPATHY
     Dates: start: 20090502

REACTIONS (2)
  - Feeling abnormal [Unknown]
  - Blood glucose increased [Recovered/Resolved]
